FAERS Safety Report 20016752 (Version 1)
Quarter: 2021Q4

REPORT INFORMATION
  Report Type: Spontaneous
  Country: US (occurrence: None)
  Receive Date: 20211104
  Receipt Date: 20211104
  Transmission Date: 20220303
  Serious: No
  Sender: FDA-Public Use
  Company Number: None

PATIENT
  Age: 49 Year
  Sex: Female

DRUGS (1)
  1. METRONIDAZOLE TOPICAL GEL [Suspect]
     Active Substance: METRONIDAZOLE
     Indication: Vaginitis gardnerella
     Dosage: FREQUENCY : AT BEDTIME; 1 APPLICATORFUL?
     Route: 061
     Dates: start: 20210701, end: 20210708

REACTIONS (4)
  - Skin infection [None]
  - Application site swelling [None]
  - Urticaria [None]
  - Pruritus [None]

NARRATIVE: CASE EVENT DATE: 20210705
